FAERS Safety Report 8669387 (Version 3)
Quarter: 2013Q3

REPORT INFORMATION
  Report Type: Spontaneous
  Country: US (occurrence: US)
  Receive Date: 20120717
  Receipt Date: 20130820
  Transmission Date: 20140515
  Serious: Yes (Hospitalization)
  Sender: FDA-Public Use
  Company Number: CHPA2012US015086

PATIENT
  Age: 86 Year
  Sex: Female

DRUGS (6)
  1. PREVACID 24HR 15MG [Suspect]
     Indication: GASTROOESOPHAGEAL REFLUX DISEASE
     Dosage: 15 MG, QD
     Route: 048
     Dates: start: 2009
  2. PREVACID 24HR 15MG [Suspect]
     Dosage: 15 MG, EVERY OTHER DAY
     Route: 048
  3. GAS-X [Suspect]
     Indication: FLATULENCE
     Dosage: 1 DF, OCCASIONALLY
     Route: 048
  4. GAS-X CHEWABLE TABLETS UNKNOWN [Suspect]
     Dosage: A FEW TABLETS ON AND OFF
     Route: 048
  5. PLAVIX [Concomitant]
  6. PREDNISONE [Concomitant]

REACTIONS (7)
  - Arterial occlusive disease [Recovered/Resolved]
  - Malaise [Recovered/Resolved]
  - Vomiting [Recovered/Resolved]
  - Pain in extremity [Recovered/Resolved]
  - Headache [Recovered/Resolved]
  - Fibromyalgia [Not Recovered/Not Resolved]
  - Treatment noncompliance [Unknown]
